FAERS Safety Report 7974721-8 (Version None)
Quarter: 2011Q4

REPORT INFORMATION
  Report Type: 
  Country: None (occurrence: None)
  Receive Date: 20111213
  Receipt Date: 20111205
  Transmission Date: 20120403
  Serious: Yes (Hospitalization)
  Sender: FDA-Public Use
  Company Number: ES-TEVA-312379ISR

PATIENT
  Age: 30 Year
  Sex: Female

DRUGS (1)
  1. VENLAFAXINE [Suspect]

REACTIONS (4)
  - DYSPNOEA [None]
  - STRESS CARDIOMYOPATHY [None]
  - SUICIDE ATTEMPT [None]
  - OVERDOSE [None]
